FAERS Safety Report 9975820 (Version 1)
Quarter: 2014Q1

REPORT INFORMATION
  Report Type: Spontaneous
  Country: FR (occurrence: FR)
  Receive Date: 20140306
  Receipt Date: 20140306
  Transmission Date: 20141002
  Serious: Yes (Other)
  Sender: FDA-Public Use
  Company Number: FR-VERTEX PHARMACEUTICALS INC-2014-001092

PATIENT
  Age: 54 Year
  Sex: Male
  Weight: 76 kg

DRUGS (9)
  1. INCIVO [Suspect]
     Indication: HEPATITIS C
     Dosage: 750 MG, TID
     Route: 048
     Dates: start: 20111011, end: 20111222
  2. PEGASYS [Suspect]
     Indication: HEPATITIS C
     Dosage: 180 ?G, QW
     Route: 065
     Dates: start: 20111011, end: 20111222
  3. COPEGUS [Concomitant]
     Indication: HEPATITIS C
     Dosage: DOSAGE FORM: TABLET, 6 TABLETS
     Dates: start: 20111011, end: 20111222
  4. PLAVIX [Concomitant]
     Indication: MYOCARDIAL INFARCTION
     Dates: start: 201102
  5. CRESTOR [Concomitant]
     Indication: CARDIOVASCULAR EVENT PROPHYLAXIS
     Dates: start: 1995
  6. LEVOTHYROX [Concomitant]
     Indication: HYPOTHYROIDISM
     Dosage: ALTERNATING DOSES
  7. LEVOTHYROX [Concomitant]
     Dosage: ALTERNATING DOSES
  8. DIFFU K [Concomitant]
     Indication: HYPOKALAEMIA
     Dosage: 600 MG, QD
     Dates: start: 20111006
  9. CARDENSIEL [Concomitant]
     Indication: HYPERTENSION
     Dates: start: 201102

REACTIONS (2)
  - Leukopenia [Recovered/Resolved]
  - Thrombocytopenia [Recovered/Resolved]
